FAERS Safety Report 12784990 (Version 1)
Quarter: 2016Q3

REPORT INFORMATION
  Report Type: Spontaneous
  Country: US (occurrence: US)
  Receive Date: 20160927
  Receipt Date: 20160927
  Transmission Date: 20161109
  Serious: Yes (Hospitalization)
  Sender: FDA-Public Use
  Company Number: US-PURDUE-USA-2016-0132404

PATIENT
  Age: 66 Year
  Sex: Male
  Weight: 102.4 kg

DRUGS (4)
  1. MORPHINE SULFATE EXTENDED-RELEASE TABLETS (RHODES 74-769, 74-862) [Suspect]
     Active Substance: MORPHINE SULFATE
     Indication: ILL-DEFINED DISORDER
  2. METHADONE [Concomitant]
     Active Substance: METHADONE HYDROCHLORIDE
     Indication: BACK PAIN
     Dosage: UNK
     Route: 065
  3. MORPHINE SULFATE EXTENDED-RELEASE TABLETS (RHODES 74-769, 74-862) [Suspect]
     Active Substance: MORPHINE SULFATE
     Indication: BACK PAIN
     Dosage: 100 MG, BID
     Route: 048
     Dates: start: 2016, end: 2016
  4. MORPHINE SULFATE EXTENDED-RELEASE TABLETS (RHODES 74-769, 74-862) [Suspect]
     Active Substance: MORPHINE SULFATE
     Indication: SCOLIOSIS
     Dosage: 100 MG, UNK
     Route: 048
     Dates: start: 2012, end: 2016

REACTIONS (2)
  - Subcutaneous abscess [Unknown]
  - Hiccups [Recovered/Resolved]

NARRATIVE: CASE EVENT DATE: 2016
